FAERS Safety Report 17677634 (Version 1)
Quarter: 2020Q2

REPORT INFORMATION
  Report Type: Spontaneous
  Country: US (occurrence: US)
  Receive Date: 20200416
  Receipt Date: 20200416
  Transmission Date: 20200714
  Serious: Yes (Hospitalization)
  Sender: FDA-Public Use
  Company Number: US-JNJFOC-20200413645

PATIENT
  Age: 51 Year
  Sex: Female
  Weight: 73.2 kg

DRUGS (1)
  1. INVOKANA [Suspect]
     Active Substance: CANAGLIFLOZIN
     Indication: PRODUCT USED FOR UNKNOWN INDICATION
     Route: 048

REACTIONS (5)
  - Staphylococcal sepsis [Unknown]
  - Gangrene [Unknown]
  - Diabetic foot infection [Unknown]
  - Osteomyelitis acute [Unknown]
  - Foot amputation [Unknown]

NARRATIVE: CASE EVENT DATE: 20130312
